FAERS Safety Report 7376672-9 (Version None)
Quarter: 2011Q1

REPORT INFORMATION
  Report Type: 
  Country: None (occurrence: None)
  Receive Date: 20110325
  Receipt Date: 20110316
  Transmission Date: 20110831
  Serious: Yes (Hospitalization)
  Sender: FDA-Public Use
  Company Number: US-ASTRAZENECA-2011SE11352

PATIENT
  Age: 54 Year
  Sex: Female

DRUGS (1)
  1. SYMBICORT [Suspect]
     Indication: CHRONIC OBSTRUCTIVE PULMONARY DISEASE
     Dosage: 160/4.5MCG
     Route: 055

REACTIONS (7)
  - ASTHMA [None]
  - DYSPNOEA [None]
  - MALAISE [None]
  - BLOOD PRESSURE INCREASED [None]
  - ANXIETY [None]
  - INCORRECT DOSE ADMINISTERED [None]
  - STRESS [None]
